FAERS Safety Report 21322196 (Version 1)
Quarter: 2022Q3

REPORT INFORMATION
  Report Type: Spontaneous
  Country: US (occurrence: None)
  Receive Date: 20220910
  Receipt Date: 20220910
  Transmission Date: 20221027
  Serious: Yes (Other)
  Sender: FDA-Public Use
  Company Number: None

PATIENT
  Age: 45 Year
  Sex: Female
  Weight: 89.55 kg

DRUGS (3)
  1. PAXLOVID [Suspect]
     Active Substance: NIRMATRELVIR\RITONAVIR
     Indication: COVID-19
     Route: 048
     Dates: start: 20220829, end: 20220902
  2. DAILY IRON [Concomitant]
  3. VITAMIN B12 [Concomitant]
     Active Substance: CYANOCOBALAMIN

REACTIONS (19)
  - Adverse drug reaction [None]
  - Diarrhoea [None]
  - Faeces discoloured [None]
  - Taste disorder [None]
  - Panic attack [None]
  - Claustrophobia [None]
  - Depressed mood [None]
  - Psychiatric symptom [None]
  - Dissociation [None]
  - Depersonalisation/derealisation disorder [None]
  - Feeling abnormal [None]
  - Nervousness [None]
  - Fear [None]
  - Insomnia [None]
  - Crying [None]
  - Drug hypersensitivity [None]
  - Dizziness [None]
  - Disorientation [None]
  - Depression [None]

NARRATIVE: CASE EVENT DATE: 20220903
